FAERS Safety Report 9465332 (Version 2)
Quarter: 2013Q3

REPORT INFORMATION
  Report Type: Report from Study
  Country: CN (occurrence: CN)
  Receive Date: 20130820
  Receipt Date: 20130905
  Transmission Date: 20140515
  Serious: Yes (Other)
  Sender: FDA-Public Use
  Company Number: CN-US-EMD SERONO, INC.-7229592

PATIENT
  Sex: Male
  Weight: 35 kg

DRUGS (2)
  1. SAIZEN [Suspect]
     Indication: GROWTH HORMONE DEFICIENCY
     Dates: start: 20091029
  2. SAIZEN [Suspect]

REACTIONS (2)
  - Haemorrhage [Unknown]
  - Drug ineffective [Unknown]
